FAERS Safety Report 5284994-0 (Version None)
Quarter: 2007Q1

REPORT INFORMATION
  Report Type: 
  Country: None (occurrence: None)
  Receive Date: 20061226
  Receipt Date: 20060502
  Transmission Date: 20070707
  Serious: Yes (Other)
  Sender: FDA-Public Use
  Company Number: WAES 0605USA00582

PATIENT
  Age: 75 Year
  Sex: Female

DRUGS (10)
  1. ZETIA [Suspect]
     Indication: HYPERCHOLESTEROLAEMIA
     Dosage: PO
     Route: 048
  2. FOSAMAX [Concomitant]
  3. HYDRODIURIL [Concomitant]
  4. PRAVACHOL [Concomitant]
  5. VASOTEC [Concomitant]
  6. ZANTAC [Concomitant]
  7. ZOLOFT [Concomitant]
  8. ASCORBIC ACID [Concomitant]
  9. NITROGLYCERIN [Concomitant]
  10. VITAMIN E [Concomitant]

REACTIONS (4)
  - ALANINE AMINOTRANSFERASE INCREASED [None]
  - ASPARTATE AMINOTRANSFERASE INCREASED [None]
  - HIGH DENSITY LIPOPROTEIN DECREASED [None]
  - LOW DENSITY LIPOPROTEIN INCREASED [None]
